FAERS Safety Report 20193146 (Version 1)
Quarter: 2021Q4

REPORT INFORMATION
  Report Type: Spontaneous
  Country: US (occurrence: None)
  Receive Date: 20211215
  Receipt Date: 20211215
  Transmission Date: 20220303
  Serious: No
  Sender: FDA-Public Use
  Company Number: None

PATIENT
  Age: 52 Year
  Sex: Female
  Weight: 88.65 kg

DRUGS (2)
  1. CASIRIVIMAB [Suspect]
     Active Substance: CASIRIVIMAB
     Indication: SARS-CoV-2 test positive
     Dosage: OTHER FREQUENCY : ONCE;?
     Route: 042
     Dates: start: 20211215, end: 20211215
  2. IMDEVIMAB [Suspect]
     Active Substance: IMDEVIMAB
     Indication: SARS-CoV-2 test positive
     Dosage: OTHER FREQUENCY : ONCE;?
     Route: 042
     Dates: start: 20211215, end: 20211215

REACTIONS (4)
  - Nausea [None]
  - Chest discomfort [None]
  - Burning sensation [None]
  - Flushing [None]

NARRATIVE: CASE EVENT DATE: 20211215
